FAERS Safety Report 9344219 (Version 1)
Quarter: 2013Q2

REPORT INFORMATION
  Report Type: Report from Study
  Country: US (occurrence: US)
  Receive Date: 20130612
  Receipt Date: 20130612
  Transmission Date: 20140414
  Serious: Yes (Other)
  Sender: FDA-Public Use
  Company Number: US-JNJFOC-20130606795

PATIENT
  Age: 49 Year
  Sex: Female
  Weight: 49.9 kg

DRUGS (4)
  1. REMICADE [Suspect]
     Indication: ARTHRITIS
     Route: 042
     Dates: start: 201304, end: 20130530
  2. REMICADE [Suspect]
     Indication: ARTHRITIS
     Route: 042
     Dates: start: 2011
  3. METHOTREXATE [Suspect]
     Indication: ARTHRITIS
     Route: 065
     Dates: end: 2011
  4. FOLIC ACID [Concomitant]
     Indication: ARTHRITIS
     Route: 048
     Dates: start: 2005

REACTIONS (11)
  - Musculoskeletal discomfort [Unknown]
  - Rotator cuff syndrome [Recovered/Resolved]
  - Tooth loss [Not Recovered/Not Resolved]
  - Kidney infection [Unknown]
  - Weight decreased [Recovered/Resolved]
  - Arthritis [Not Recovered/Not Resolved]
  - Paraesthesia oral [Unknown]
  - Back pain [Unknown]
  - Influenza like illness [Unknown]
  - Gingival pain [Unknown]
  - Tooth disorder [Not Recovered/Not Resolved]
